FAERS Safety Report 10576283 (Version 2)
Quarter: 2014Q4

REPORT INFORMATION
  Report Type: Report from Study
  Country: US (occurrence: US)
  Receive Date: 20141111
  Receipt Date: 20141111
  Transmission Date: 20150529
  Serious: Yes (Other)
  Sender: FDA-Public Use
  Company Number: US-SA-2013SA117703

PATIENT
  Age: 53 Year
  Sex: Female

DRUGS (1)
  1. AUBAGIO [Suspect]
     Active Substance: TERIFLUNOMIDE
     Indication: MULTIPLE SCLEROSIS
     Route: 048
     Dates: start: 20130728

REACTIONS (8)
  - Multiple sclerosis relapse [Unknown]
  - Product packaging issue [Unknown]
  - Abdominal discomfort [Recovered/Resolved]
  - Treatment noncompliance [Unknown]
  - Malaise [Unknown]
  - Ankle fracture [Unknown]
  - Fall [Unknown]
  - Fatigue [Unknown]
